FAERS Safety Report 7405334-4 (Version None)
Quarter: 2011Q2

REPORT INFORMATION
  Report Type: 
  Country: None (occurrence: None)
  Receive Date: 20110401
  Receipt Date: 20110321
  Transmission Date: 20111010
  Serious: Yes (Other)
  Sender: FDA-Public Use
  Company Number: 868650

PATIENT
  Age: 73 Year
  Sex: Male
  Weight: 72 kg

DRUGS (14)
  1. CYTARABINE [Suspect]
     Indication: CHRONIC LYMPHOCYTIC LEUKAEMIA
     Dosage: BIWEEKLY, INTRAVENOUS (NOT OTHERWISE SPECIFIED)
     Route: 042
  2. QUETIAPINE [Concomitant]
  3. SUCCINYLCHOLINE CHLORIDE [Suspect]
     Indication: NEUROMUSCULAR BLOCKING THERAPY
     Dosage: 1ST TO 4TH ECT TREATMENT; 90 MG, 5TH ECT TREATMENT: 70 MG, 6TH ECT TREATMENT: 50 MG
  4. (ACICLOVIR) [Concomitant]
  5. VINCRISTINE SULFATE [Suspect]
     Indication: CHRONIC LYMPHOCYTIC LEUKAEMIA
     Dosage: BIWEEKLY, INTRAVENOUS (NOT OTHERWISE SPECIFIED)
     Route: 042
  6. (RITUXIMAB) [Suspect]
     Indication: CHRONIC LYMPHOCYTIC LEUKAEMIA
     Dosage: BIWEEKLY, INTRAVENOUS (NOT OTHERWISE SPECIFIED)
     Route: 042
  7. (PANTOPRAZOLE) [Concomitant]
  8. LOSARTAN POTASSIUM [Concomitant]
  9. CLONAZEPAM [Concomitant]
  10. (SENNA /00142201/) [Concomitant]
  11. (METHOHEXITAL) [Suspect]
     Indication: PRODUCT USED FOR UNKNOWN INDICATION
     Dosage: 80 MG
  12. ALLOPURINOL [Concomitant]
  13. (ATORVASTATIN) [Concomitant]
  14. (COLACE) [Concomitant]

REACTIONS (9)
  - WEIGHT DECREASED [None]
  - DRUG INTERACTION [None]
  - VISUAL IMPAIRMENT [None]
  - LEUKAEMIA RECURRENT [None]
  - DEPRESSED MOOD [None]
  - ANHEDONIA [None]
  - NEUROMUSCULAR BLOCK PROLONGED [None]
  - DEPRESSION [None]
  - CHRONIC LYMPHOCYTIC LEUKAEMIA [None]
